FAERS Safety Report 7580973-9 (Version None)
Quarter: 2011Q2

REPORT INFORMATION
  Report Type: 
  Country: None (occurrence: None)
  Receive Date: 20110629
  Receipt Date: 20110628
  Transmission Date: 20111010
  Serious: Yes (Other)
  Sender: FDA-Public Use
  Company Number: JP-ACTELION-A-CH2010-42189

PATIENT
  Age: 41 Year

DRUGS (3)
  1. SILDENAFIL CITRATE [Concomitant]
  2. TRACLEER [Suspect]
     Indication: PULMONARY ARTERIAL HYPERTENSION
     Dosage: 62.5 MG, BID
     Route: 048
  3. BERAPROST SODIUM [Concomitant]

REACTIONS (2)
  - OSTEONECROSIS [None]
  - OSTEOARTHRITIS [None]
